FAERS Safety Report 18035201 (Version 1)
Quarter: 2020Q3

REPORT INFORMATION
  Report Type: Spontaneous
  Country: US (occurrence: US)
  Receive Date: 20200716
  Receipt Date: 20200716
  Transmission Date: 20201103
  Serious: Yes (Death, Hospitalization)
  Sender: FDA-Public Use
  Company Number: None

PATIENT
  Sex: Female
  Weight: 78.8 kg

DRUGS (6)
  1. VINCRISTINE SULFATE. [Suspect]
     Active Substance: VINCRISTINE SULFATE
  2. PREDNISONE. [Suspect]
     Active Substance: PREDNISONE
  3. CYTARABINE. [Concomitant]
     Active Substance: CYTARABINE
  4. DAUNORUBICIN [Suspect]
     Active Substance: DAUNORUBICIN
  5. ONCASPAR [Suspect]
     Active Substance: PEGASPARGASE
  6. METHOTREXATE. [Suspect]
     Active Substance: METHOTREXATE

REACTIONS (18)
  - Muscular weakness [None]
  - Vomiting [None]
  - Thrombocytopenia [None]
  - Febrile neutropenia [None]
  - Thrombosis [None]
  - Mental status changes [None]
  - COVID-19 [None]
  - Staphylococcal sepsis [None]
  - Cytokine abnormal [None]
  - Anaemia [None]
  - Amenorrhoea [None]
  - Hyperglycaemia [None]
  - Pain [None]
  - B precursor type acute leukaemia [None]
  - Nausea [None]
  - Dizziness [None]
  - Gait inability [None]
  - Tachypnoea [None]

NARRATIVE: CASE EVENT DATE: 20190711
